FAERS Safety Report 11972559 (Version 1)
Quarter: 2016Q1

REPORT INFORMATION
  Report Type: Spontaneous
  Country: US (occurrence: US)
  Receive Date: 20160128
  Receipt Date: 20160128
  Transmission Date: 20160526
  Serious: No
  Sender: FDA-Public Use
  Company Number: US-PFIZER INC-2016040109

PATIENT
  Age: 67 Year
  Sex: Female

DRUGS (1)
  1. DICLOFENAC EPOLAMINE [Suspect]
     Active Substance: DICLOFENAC EPOLAMINE
     Indication: PAIN IN EXTREMITY
     Dosage: 75 MG, 2X/DAY

REACTIONS (2)
  - Drug ineffective for unapproved indication [Unknown]
  - Paraesthesia [Unknown]
